FAERS Safety Report 5096078-5 (Version None)
Quarter: 2006Q3

REPORT INFORMATION
  Report Type: 
  Country: None (occurrence: None)
  Receive Date: 20060830
  Receipt Date: 20060821
  Transmission Date: 20061208
  Serious: Yes (Other)
  Sender: FDA-Public Use
  Company Number: USA-2006-0024287

PATIENT
  Sex: Male

DRUGS (2)
  1. MORPHINE SULFATE INJ [Suspect]
     Indication: POSTOPERATIVE ANALGESIA
     Dosage: SEE TEXT, INTRAVENOUS
     Route: 042
     Dates: start: 20060520
  2. DURAMORPH PF [Suspect]
     Indication: POSTOPERATIVE ANALGESIA
     Dosage: SEE TEXT, INTRATHECAL
     Route: 037
     Dates: start: 20060519

REACTIONS (4)
  - PALLOR [None]
  - PROCEDURAL PAIN [None]
  - SHOCK [None]
  - UNDERDOSE [None]
